FAERS Safety Report 5459302-2 (Version None)
Quarter: 2007Q3

REPORT INFORMATION
  Report Type: 
  Country: None (occurrence: None)
  Receive Date: 20070919
  Receipt Date: 20070917
  Transmission Date: 20080115
  Serious: Yes (Life-Threatening)
  Sender: FDA-Public Use
  Company Number: FR-ASTRAZENECA-2007CG01310

PATIENT
  Age: 6573 Day
  Sex: Female

DRUGS (2)
  1. DIPRIVAN [Suspect]
     Indication: GENERAL ANAESTHESIA
     Route: 042
     Dates: start: 20060906, end: 20060906
  2. CELOCURINE [Suspect]
     Indication: GENERAL ANAESTHESIA
     Route: 042
     Dates: start: 20060906, end: 20060906

REACTIONS (3)
  - ARRHYTHMIA [None]
  - BRONCHOSPASM [None]
  - VASOCONSTRICTION [None]
